FAERS Safety Report 23152590 (Version 1)
Quarter: 2023Q4

REPORT INFORMATION
  Report Type: Other
  Country: US (occurrence: None)
  Receive Date: 20231107
  Receipt Date: 20231107
  Transmission Date: 20240110
  Serious: No
  Sender: FDA-Public Use
  Company Number: US-ROCHE-3207938

PATIENT
  Age: 40 Year
  Sex: Male

DRUGS (5)
  1. OCREVUS [Suspect]
     Active Substance: OCRELIZUMAB
     Indication: Relapsing multiple sclerosis
     Dosage: THEN 600 MG EVERY 6 MONTH, DATE OF TREATMENT: 06/APR/2021, 04/OCT/2023, 04/OCT/2022, 04/APR/2022, 05
     Route: 042
     Dates: start: 20210323
  2. DIPHENHYDRAMINE [Concomitant]
     Active Substance: DIPHENHYDRAMINE
  3. TYLENOL [Concomitant]
     Active Substance: ACETAMINOPHEN
  4. SOLU-MEDROL [Concomitant]
     Active Substance: METHYLPREDNISOLONE SODIUM SUCCINATE
  5. GABAPENTIN [Concomitant]
     Active Substance: GABAPENTIN

REACTIONS (6)
  - Rhinorrhoea [Recovered/Resolved]
  - Lower respiratory tract congestion [Recovered/Resolved]
  - Chills [Unknown]
  - Hyperhidrosis [Unknown]
  - Anxiety [Unknown]
  - Demyelination [Unknown]

NARRATIVE: CASE EVENT DATE: 20211001
